FAERS Safety Report 8916455 (Version 2)
Quarter: 2013Q4

REPORT INFORMATION
  Report Type: Spontaneous
  Country: FR (occurrence: FR)
  Receive Date: 20121120
  Receipt Date: 20131212
  Transmission Date: 20140711
  Serious: Yes (Hospitalization, Disabling)
  Sender: FDA-Public Use
  Company Number: FR-PFIZER INC-2012284847

PATIENT
  Age: 32 Year
  Sex: Female

DRUGS (3)
  1. SOLU-MEDROL [Suspect]
     Indication: MULTIPLE SCLEROSIS
     Dosage: 3 DF, 1X/DAY
     Route: 042
     Dates: start: 20120627, end: 20120629
  2. TYSABRI [Suspect]
     Indication: MULTIPLE SCLEROSIS
     Dosage: 1 DF, MONTHLY
     Route: 042
     Dates: start: 201202, end: 20120629
  3. XYZAL [Concomitant]
     Dosage: 1 DF, 1X/DAY

REACTIONS (1)
  - Viral myelitis [Recovering/Resolving]
